FAERS Safety Report 18062763 (Version 2)
Quarter: 2020Q3

REPORT INFORMATION
  Report Type: Spontaneous
  Country: CH (occurrence: CH)
  Receive Date: 20200724
  Receipt Date: 20200807
  Transmission Date: 20201103
  Serious: Yes (Other)
  Sender: FDA-Public Use
  Company Number: CH-TEVA-2020-CH-1188175

PATIENT
  Age: 66 Year

DRUGS (4)
  1. IRINOTECAN?TEVA 500MG/25ML [Suspect]
     Active Substance: IRINOTECAN
     Indication: BRAF GENE MUTATION
  2. LEUCOVORIN?TEVA 500MG/50ML [Suspect]
     Active Substance: LEUCOVORIN
     Indication: COLON CANCER METASTATIC
     Dosage: 500MG/50ML
     Route: 065
     Dates: start: 202002
  3. IRINOTECAN?TEVA 500MG/25ML [Suspect]
     Active Substance: IRINOTECAN
     Indication: COLON CANCER METASTATIC
     Dosage: 500MG/25ML
     Route: 065
     Dates: start: 202002
  4. LEUCOVORIN?TEVA 500MG/50ML [Suspect]
     Active Substance: LEUCOVORIN
     Indication: BRAF GENE MUTATION

REACTIONS (2)
  - Off label use [Unknown]
  - Haematotoxicity [Unknown]

NARRATIVE: CASE EVENT DATE: 2020
